FAERS Safety Report 9123527 (Version 2)
Quarter: 2013Q1

REPORT INFORMATION
  Report Type: Spontaneous
  Country: IT (occurrence: None)
  Receive Date: 20130129
  Receipt Date: 20130205
  Transmission Date: 20140127
  Serious: Yes (Other)
  Sender: FDA-Public Use
  Company Number: AUR-APL-2013-01015

PATIENT
  Age: 67 Year
  Sex: Male
  Weight: 93 kg

DRUGS (6)
  1. METFORMIN [Suspect]
     Indication: HYPERGLYCAEMIA
     Dosage: 1500 MG, 1 D, ORAL
     Route: 048
     Dates: start: 20020101, end: 20121201
  2. TESAVEL (SITAGLIPTIN) [Concomitant]
  3. GLIBOMET (GLIBOMET) [Concomitant]
  4. NORVASC (AMLODIPINE BESILATE) [Concomitant]
  5. KARVEZIDE (KARVEA HCT) [Concomitant]
  6. NEBILOX (NEBIVOLOL HYDROCHLORIDE [Concomitant]

REACTIONS (2)
  - Coeliac disease [None]
  - Quality of life decreased [None]
